FAERS Safety Report 24035877 (Version 1)
Quarter: 2024Q3

REPORT INFORMATION
  Report Type: Spontaneous
  Country: US (occurrence: US)
  Receive Date: 20240701
  Receipt Date: 20240701
  Transmission Date: 20241017
  Serious: Yes (Other)
  Sender: NOVARTIS
  Company Number: US-002147023-NVSC2024US132572

PATIENT
  Age: 72 Year
  Sex: Male

DRUGS (9)
  1. PLUVICTO [Suspect]
     Active Substance: LUTETIUM LU-177 VIPIVOTIDE TETRAXETAN
     Indication: Prostate cancer stage IV
     Dosage: UNK (X3)
     Route: 065
     Dates: start: 202312, end: 202403
  2. ZOMETA [Suspect]
     Active Substance: ZOLEDRONIC ACID
     Indication: Product used for unknown indication
     Dosage: UNK
     Route: 065
  3. CABAZITAXEL [Suspect]
     Active Substance: CABAZITAXEL
     Indication: Product used for unknown indication
     Dosage: UNK (X6 WITH PD)
     Route: 065
  4. TAXOTERE [Suspect]
     Active Substance: DOCETAXEL
     Indication: Product used for unknown indication
     Dosage: UNK (X6)
     Route: 065
     Dates: start: 2016
  5. TAXOTERE [Suspect]
     Active Substance: DOCETAXEL
     Dosage: UNK (X3)
     Route: 065
     Dates: start: 2017
  6. TAXOTERE [Suspect]
     Active Substance: DOCETAXEL
     Dosage: UNK (X6)
     Route: 065
     Dates: start: 20210811
  7. ABIRATERONE [Suspect]
     Active Substance: ABIRATERONE
     Indication: Product used for unknown indication
     Dosage: UNK (X1.5 YEARS)
     Route: 065
  8. XTANDI [Suspect]
     Active Substance: ENZALUTAMIDE
     Indication: Product used for unknown indication
     Dosage: UNK (WITH PR THEN PD)
     Route: 065
     Dates: end: 202306
  9. PREDNISOLONE [Suspect]
     Active Substance: PREDNISOLONE

REACTIONS (5)
  - Prostatic specific antigen increased [Unknown]
  - Cytopenia [Unknown]
  - Disease progression [Unknown]
  - Malignant neoplasm progression [Unknown]
  - Tachycardia [Unknown]
